FAERS Safety Report 21623235 (Version 1)
Quarter: 2022Q4

REPORT INFORMATION
  Report Type: Spontaneous
  Country: US (occurrence: None)
  Receive Date: 20221118
  Receipt Date: 20221118
  Transmission Date: 20230112
  Serious: Yes (Life-Threatening)
  Sender: FDA-Public Use
  Company Number: None

PATIENT
  Age: 71 Year
  Sex: Female
  Weight: 63.5 kg

DRUGS (22)
  1. ZOLEDRONIC ACID [Suspect]
     Active Substance: ZOLEDRONIC ACID
     Indication: Bone disorder
     Dosage: FREQUENCY: YEARLY FOR 3 YEARS
     Route: 042
     Dates: start: 20221014
  2. ZOLEDRONIC ACID [Suspect]
     Active Substance: ZOLEDRONIC ACID
     Indication: Fracture
  3. ARMOUR THYROID [Concomitant]
     Active Substance: THYROID, PORCINE
  4. LEVOTHYROXINE [Concomitant]
     Active Substance: LEVOTHYROXINE
  5. ASPIRIN [Concomitant]
     Active Substance: ASPIRIN
  6. COENZYME Q10 [Concomitant]
     Active Substance: DIETARY SUPPLEMENT\UBIDECARENONE
  7. GINKGO [Concomitant]
     Active Substance: GINKGO
  8. MAGNESIUM CITRATE [Concomitant]
     Active Substance: MAGNESIUM CITRATE
  9. MAGNESIUM CITRATE [Concomitant]
     Active Substance: MAGNESIUM CITRATE
  10. HERBALS\TURMERIC [Concomitant]
     Active Substance: HERBALS\TURMERIC
  11. CURCUMIN [Concomitant]
     Active Substance: CURCUMIN
  12. MELATONIN [Concomitant]
     Active Substance: MELATONIN
  13. VITAMINS [Concomitant]
     Active Substance: VITAMINS
  14. B50 [Concomitant]
  15. VITAMIN E [Concomitant]
     Active Substance: .ALPHA.-TOCOPHEROL
  16. MENAQUINONE 6 [Concomitant]
     Active Substance: MENAQUINONE 6
  17. PRAVASTATIN [Concomitant]
     Active Substance: PRAVASTATIN
  18. EZETIMIBE [Concomitant]
     Active Substance: EZETIMIBE
  19. TRIAMCINOLONE OINTMENT [Concomitant]
  20. CALCIUM [Concomitant]
     Active Substance: CALCIUM
  21. VITAMIN D NOS [Concomitant]
     Active Substance: VITAMIN D NOS
  22. VITAMIN C [Concomitant]
     Active Substance: ASCORBIC ACID

REACTIONS (17)
  - Headache [None]
  - Pyrexia [None]
  - Chills [None]
  - Bone pain [None]
  - Arthralgia [None]
  - Myalgia [None]
  - Fatigue [None]
  - Urticaria [None]
  - Influenza like illness [None]
  - Middle insomnia [None]
  - Muscle spasms [None]
  - Movement disorder [None]
  - Bedridden [None]
  - Hypophagia [None]
  - Diarrhoea [None]
  - Asthenia [None]
  - Hypersensitivity [None]

NARRATIVE: CASE EVENT DATE: 20221014
